FAERS Safety Report 20142609 (Version 1)
Quarter: 2021Q4

REPORT INFORMATION
  Report Type: Spontaneous
  Country: US (occurrence: None)
  Receive Date: 20211202
  Receipt Date: 20211202
  Transmission Date: 20220303
  Serious: No
  Sender: FDA-Public Use
  Company Number: US-ROCHE-2713076

PATIENT
  Sex: Female

DRUGS (28)
  1. VALIUM [Suspect]
     Active Substance: DIAZEPAM
     Indication: Product used for unknown indication
     Dosage: THERAPY ONGOING STATUS: YES.
     Route: 065
     Dates: start: 20200203
  2. VITAMIN D3 [Concomitant]
     Active Substance: CHOLECALCIFEROL
     Dosage: 50 MCG (2000UT) TABLET, 1 TABLET, THERAPY ONGOING STATUS: YES
     Route: 048
     Dates: start: 20200203
  3. ACTHAR [Concomitant]
     Active Substance: CORTICOTROPIN
     Dosage: 1 INJECTION DAILY THERAPY ONGOING STATUS: YES
     Dates: start: 20200511
  4. ALBUTEROL SULFATE [Concomitant]
     Active Substance: ALBUTEROL SULFATE
     Dosage: 2.5MG/3ML, 0.083% NEBULIZED SOLUTION, INHALATION, THERAPY ONGOING STATUS: YES
     Dates: start: 20191109
  5. AMOXICILLIN\CLAVULANIC ACID [Concomitant]
     Active Substance: AMOXICILLIN\CLAVULANIC ACID
  6. BENAZEPRIL HYDROCHLORIDE [Concomitant]
     Active Substance: BENAZEPRIL HYDROCHLORIDE
     Dosage: THERAPY ONGOING STATUS: YES, ONE TABLET
     Route: 048
     Dates: start: 20200806
  7. CLONIDINE HYDROCHLORIDE [Concomitant]
     Active Substance: CLONIDINE HYDROCHLORIDE
     Dosage: THERAPY ONGOING STATUS: YES, 1 TABLET
     Route: 048
     Dates: start: 20200914
  8. COPAXONE [Concomitant]
     Active Substance: GLATIRAMER ACETATE
     Dosage: 40 MG/ML SOLUTION PREF SYR ,THERAPY ONGOING STATUS: YES
     Route: 058
     Dates: start: 20191111
  9. CYANOCOBALAMIN [Concomitant]
     Active Substance: CYANOCOBALAMIN
     Dosage: 1 INJECTION, THERAPY ONGOING STATUS: YES
     Dates: start: 20200203
  10. FLUOXETINE HYDROCHLORIDE [Concomitant]
     Active Substance: FLUOXETINE HYDROCHLORIDE
     Dosage: THERAPY ONGOING STATUS: YES, 1 TABLET
     Route: 048
     Dates: start: 20200806
  11. FLUOXETINE HYDROCHLORIDE [Concomitant]
     Active Substance: FLUOXETINE HYDROCHLORIDE
     Dosage: THERAPY ONGOING STATUS: YES, 1 TABLET
     Route: 048
     Dates: start: 20190818
  12. FUROSEMIDE [Concomitant]
     Active Substance: FUROSEMIDE
     Dosage: 1 TABLET, THERAPY ONGOING STATUS: YES
     Route: 048
     Dates: start: 20200203
  13. FUROSEMIDE [Concomitant]
     Active Substance: FUROSEMIDE
     Dosage: 1 TABLET, THERAPY ONGOING STATUS: YES
     Route: 048
     Dates: start: 20190818
  14. GABAPENTIN [Concomitant]
     Active Substance: GABAPENTIN
     Dosage: 1 CAPSULE, THERAPY ONGOING STATUS: YES
     Route: 048
     Dates: start: 20190627
  15. IBUPROFEN [Concomitant]
     Active Substance: IBUPROFEN
     Indication: Back pain
     Dosage: 1 TABLET AS NEEDED, PRN, THERAPY ONGOING STATUS: YES
     Route: 048
     Dates: start: 20200203
  16. IBUPROFEN [Concomitant]
     Active Substance: IBUPROFEN
     Indication: Pain in extremity
  17. LEVETIRACETAM [Concomitant]
     Active Substance: LEVETIRACETAM
     Dosage: 1 TABLET, THERAPY ONGOING STATUS: YES
     Route: 048
     Dates: start: 20200831
  18. LEVOFLOXACIN [Concomitant]
     Active Substance: LEVOFLOXACIN
     Dosage: THERAPY ONGOING STATUS: YES
     Route: 048
  19. MAGNESIUM OXIDE [Concomitant]
     Active Substance: MAGNESIUM OXIDE
     Dosage: 1 TABLET, THERAPY ONGOING STATUS: YES
     Route: 048
     Dates: start: 20200203
  20. MIRTAZAPINE [Concomitant]
     Active Substance: MIRTAZAPINE
     Dosage: 1 TABLET AT BEDTIME, THERAPY ONGOING STATUS: YES
     Route: 048
     Dates: start: 20191111
  21. PAROXETINE [Concomitant]
     Active Substance: PAROXETINE
     Dosage: THERAPY ONGOING STATUS: YES
     Route: 048
  22. POTASSIUM CHLORIDE [Concomitant]
     Active Substance: POTASSIUM CHLORIDE
     Dosage: PTASSIUM CHLORIDE ER, 1 TABLET, THERAPY ONGOING STATUS: YES
     Route: 048
     Dates: start: 20200203
  23. PREGABALIN [Concomitant]
     Active Substance: PREGABALIN
     Dosage: THERAPY ONGOING STATUS: YES
     Route: 048
     Dates: start: 20201029
  24. PROAIR HFA [Concomitant]
     Active Substance: ALBUTEROL SULFATE
     Dosage: 2 PUFFS INHALATIONS, THERAPY ONGOING STATUS: YES
     Dates: start: 20191109
  25. REBIF [Concomitant]
     Active Substance: INTERFERON BETA-1A
     Dosage: THERAPY ONGOING STATUS: YES
     Route: 058
     Dates: start: 20200806
  26. TIZANIDINE HYDROCHLORIDE [Concomitant]
     Active Substance: TIZANIDINE HYDROCHLORIDE
     Dosage: 1 TABLET, THERAPY ONGOING STATUS: YES
     Route: 048
     Dates: start: 20201029
  27. TOPIRAMATE [Concomitant]
     Active Substance: TOPIRAMATE
     Dosage: 1 TABLET, THERAPY ONGOING STATUS: YES
     Route: 048
     Dates: start: 20200203
  28. TRAZODONE HCL [Concomitant]
     Active Substance: TRAZODONE HYDROCHLORIDE
     Dosage: THERAPY ONGOING STATUS: YES
     Route: 048
     Dates: start: 20190818

REACTIONS (4)
  - Tinnitus [Unknown]
  - Musculoskeletal stiffness [Unknown]
  - Memory impairment [Unknown]
  - Urinary incontinence [Unknown]
